FAERS Safety Report 8596271 (Version 3)
Quarter: 2012Q4

REPORT INFORMATION
  Report Type: 
  Country: US (occurrence: US)
  Receive Date: 20120605
  Receipt Date: 20121004
  Transmission Date: 20130627
  Serious: Yes (Hospitalization)
  Sender: FDA-Public Use
  Company Number: US-BAYER-2012-054820

PATIENT
  Age: 36 Year
  Sex: Female
  Weight: 63.49 kg

DRUGS (3)
  1. YAZ [Suspect]
     Indication: CONTRACEPTION
     Dosage: UNK
     Dates: start: 20080108, end: 20080611
  2. CLOBETASOL [Concomitant]
     Dosage: 0.05/5 gel,UNK
     Dates: start: 20080420
  3. MOTRIN [Concomitant]
     Dosage: 500 mg, UNK
     Dates: start: 20080611

REACTIONS (5)
  - Pulmonary embolism [None]
  - Pulmonary infarction [None]
  - Injury [None]
  - Pain [None]
  - Pain [None]
